FAERS Safety Report 4291409-8 (Version None)
Quarter: 2004Q1

REPORT INFORMATION
  Report Type: 
  Country: None (occurrence: None)
  Receive Date: 20040211
  Receipt Date: 20030924
  Transmission Date: 20041129
  Serious: No
  Sender: FDA-Public Use
  Company Number: US-BRISTOL-MYERS SQUIBB COMPANY-12392122

PATIENT
  Age: 30 Year
  Sex: Male
  Weight: 79 kg

DRUGS (3)
  1. CEFZIL [Suspect]
     Indication: SINUSITIS
     Route: 048
     Dates: start: 20030923, end: 20030923
  2. CEFZIL [Suspect]
     Indication: COUGH
     Route: 048
     Dates: start: 20030923, end: 20030923
  3. HYDROMET [Concomitant]
     Indication: COUGH
     Dates: start: 20030923

REACTIONS (3)
  - ABDOMINAL PAIN UPPER [None]
  - NAUSEA [None]
  - VOMITING [None]
